APPROVED DRUG PRODUCT: METHYLPHENIDATE HYDROCHLORIDE
Active Ingredient: METHYLPHENIDATE HYDROCHLORIDE
Strength: 10MG/5ML
Dosage Form/Route: SOLUTION;ORAL
Application: A201466 | Product #002
Applicant: NOVITIUM PHARMA LLC
Approved: Nov 12, 2013 | RLD: No | RS: No | Type: DISCN